FAERS Safety Report 9226983 (Version 1)
Quarter: 2013Q2

REPORT INFORMATION
  Report Type: Spontaneous
  Country: CH (occurrence: None)
  Receive Date: 20130410
  Receipt Date: 20130410
  Transmission Date: 20140414
  Serious: Yes (Other)
  Sender: FDA-Public Use
  Company Number: 20130171

PATIENT
  Age: 39 Year
  Sex: Female

DRUGS (5)
  1. VENOFER [Suspect]
     Indication: PRODUCT USED FOR UNKNOWN INDICATION
     Dosage: 20MG OVER 40 MINUTES INTRAVENOUS DRIP
     Route: 041
     Dates: start: 20111212
  2. CALCIPOS B FORTE [Concomitant]
  3. MULTIVITAMIN [Concomitant]
  4. FOLACIN [Concomitant]
  5. BEHEPAN [Concomitant]

REACTIONS (3)
  - Influenza [None]
  - Abortion spontaneous [None]
  - Maternal exposure during pregnancy [None]
